FAERS Safety Report 7226729-8 (Version None)
Quarter: 2011Q1

REPORT INFORMATION
  Report Type: 
  Country: None (occurrence: None)
  Receive Date: 20110110
  Receipt Date: 20110110
  Transmission Date: 20110831
  Serious: Yes (Hospitalization)
  Sender: FDA-Public Use
  Company Number: None

PATIENT
  Sex: Male
  Weight: 86.8 kg

DRUGS (8)
  1. CAMPTOSAR [Suspect]
     Dosage: 300 MG
     Dates: end: 20101229
  2. FERROUS SULFATE TAB [Concomitant]
  3. IMODIUM [Concomitant]
  4. FLUOROURACIL [Suspect]
     Dosage: 4480 MG
     Dates: end: 20101229
  5. LOMOTIL [Concomitant]
  6. LEUCOVORIN CALCIUM [Suspect]
     Dosage: 0 MG
     Dates: end: 20101215
  7. VITAMIN D [Concomitant]
  8. ERBITUX [Suspect]
     Dosage: 1000 MG
     Dates: end: 20110105

REACTIONS (2)
  - PYREXIA [None]
  - DEEP VEIN THROMBOSIS [None]
